FAERS Safety Report 9970995 (Version 1)
Quarter: 2014Q1

REPORT INFORMATION
  Report Type: Report from Study
  Country: US (occurrence: US)
  Receive Date: 20140306
  Receipt Date: 20140306
  Transmission Date: 20141002
  Serious: Yes (Other)
  Sender: FDA-Public Use
  Company Number: US-ABBVIE-13P-163-1148131-00

PATIENT
  Sex: Female

DRUGS (13)
  1. HUMIRA [Suspect]
     Indication: PSORIASIS
     Dates: start: 201306, end: 20130826
  2. CYMBALTA [Concomitant]
     Indication: DEPRESSION
  3. PRILOSEC [Concomitant]
     Indication: GASTRIC DISORDER
  4. ESTRADIOL [Concomitant]
     Indication: HORMONE REPLACEMENT THERAPY
  5. SIMVASTATIN [Concomitant]
     Indication: BLOOD CHOLESTEROL
  6. BUPROPION [Concomitant]
     Indication: DEPRESSION
  7. VIT B12 [Concomitant]
     Indication: VITAMIN SUPPLEMENTATION
  8. VITAMIN B6 [Concomitant]
     Indication: VITAMIN SUPPLEMENTATION
  9. VIT D [Concomitant]
     Indication: VITAMIN SUPPLEMENTATION
  10. FISH OIL [Concomitant]
     Indication: SUPPLEMENTATION THERAPY
  11. FOLIC ACID [Concomitant]
     Indication: VITAMIN SUPPLEMENTATION
     Dosage: DOSE: UNKNOWN
  12. ASPIRIN [Concomitant]
     Indication: PRODUCT USED FOR UNKNOWN INDICATION
  13. HYDROXYZINE [Concomitant]
     Indication: INSOMNIA
     Dosage: 2 TO 3, NIGHTLY

REACTIONS (3)
  - Tremor [Not Recovered/Not Resolved]
  - Multiple sclerosis [Not Recovered/Not Resolved]
  - Psoriatic arthropathy [Unknown]
